FAERS Safety Report 15598261 (Version 1)
Quarter: 2018Q4

REPORT INFORMATION
  Report Type: Spontaneous
  Country: US (occurrence: US)
  Receive Date: 20181108
  Receipt Date: 20181108
  Transmission Date: 20190205
  Serious: No
  Sender: FDA-Public Use
  Company Number: US-ALLERGAN-1812038US

PATIENT
  Sex: Male

DRUGS (1)
  1. RAPAFLO [Suspect]
     Active Substance: SILODOSIN
     Indication: POLLAKIURIA
     Dosage: 8 MG, QD
     Route: 048
     Dates: start: 20180125

REACTIONS (2)
  - Off label use [Unknown]
  - Dizziness [Unknown]
